FAERS Safety Report 6700290-6 (Version None)
Quarter: 2010Q2

REPORT INFORMATION
  Report Type: 
  Country: None (occurrence: None)
  Receive Date: 20100426
  Receipt Date: 20090303
  Transmission Date: 20101027
  Serious: Yes (Other)
  Sender: FDA-Public Use
  Company Number: WAES 0903USA00551

PATIENT
  Age: 46 Year
  Sex: Female

DRUGS (2)
  1. SINGULAIR [Suspect]
     Indication: ASTHMA
     Dosage: 10 MG/DAILY/PO
     Route: 048
     Dates: start: 20040101
  2. TEGRETOL [Suspect]
     Indication: CONVULSION

REACTIONS (8)
  - AGORAPHOBIA [None]
  - CONVULSION [None]
  - DECREASED INTEREST [None]
  - DEPRESSION [None]
  - DRUG INEFFECTIVE [None]
  - FATIGUE [None]
  - NOCTURNAL FEAR [None]
  - SLEEP TERROR [None]
